FAERS Safety Report 12506646 (Version 1)
Quarter: 2016Q2

REPORT INFORMATION
  Report Type: Report from Study
  Country: US (occurrence: US)
  Receive Date: 20160628
  Receipt Date: 20160628
  Transmission Date: 20160815
  Serious: No
  Sender: FDA-Public Use
  Company Number: US-009507513-1606USA010024

PATIENT
  Age: 22 Year
  Sex: Female
  Weight: 101.59 kg

DRUGS (1)
  1. IMPLANON [Suspect]
     Active Substance: ETONOGESTREL
     Dosage: UNK
     Route: 059
     Dates: end: 20160616

REACTIONS (3)
  - Device difficult to use [Recovered/Resolved]
  - Muscle spasms [Unknown]
  - Amenorrhoea [Unknown]

NARRATIVE: CASE EVENT DATE: 20160616
